FAERS Safety Report 6892889-1 (Version None)
Quarter: 2010Q3

REPORT INFORMATION
  Report Type: 
  Country: None (occurrence: None)
  Receive Date: 20100731
  Receipt Date: 20081105
  Transmission Date: 20110219
  Serious: No
  Sender: FDA-Public Use
  Company Number: US-PFIZER INC-2008060773

PATIENT
  Sex: Male
  Weight: 72.7 kg

DRUGS (6)
  1. NEURONTIN [Suspect]
     Indication: NEUROPATHY PERIPHERAL
     Dates: start: 20070101, end: 20070101
  2. INTERFERON [Concomitant]
  3. MORPHINE [Concomitant]
  4. NAPROXEN [Concomitant]
  5. SOMA [Concomitant]
  6. METHADONE HCL [Concomitant]

REACTIONS (1)
  - DRUG INEFFECTIVE [None]
